FAERS Safety Report 4982525-3 (Version None)
Quarter: 2006Q2

REPORT INFORMATION
  Report Type: 
  Country: None (occurrence: None)
  Receive Date: 20060421
  Receipt Date: 20060418
  Transmission Date: 20061013
  Serious: No
  Sender: FDA-Public Use
  Company Number: 007216

PATIENT
  Sex: Female

DRUGS (5)
  1. MEDROXYPROGESTERONE ACETATE [Suspect]
     Dosage: ORAL
     Route: 048
     Dates: start: 19860401, end: 20020401
  2. PREMARIN [Suspect]
     Dosage: ORAL
     Route: 048
     Dates: start: 19860401, end: 20020401
  3. PROVERA [Suspect]
     Dosage: ORAL
     Route: 048
     Dates: start: 19860401, end: 20020401
  4. CYCRIN [Suspect]
     Dosage: ORAL
     Route: 048
     Dates: start: 19860401, end: 20020401
  5. PREMPRO [Suspect]
     Dosage: ORAL
     Route: 048
     Dates: start: 19860401, end: 20020401

REACTIONS (1)
  - BREAST CANCER FEMALE [None]
